FAERS Safety Report 6880081-6 (Version None)
Quarter: 2010Q3

REPORT INFORMATION
  Report Type: 
  Country: None (occurrence: None)
  Receive Date: 20100728
  Receipt Date: 20090813
  Transmission Date: 20110219
  Serious: Yes (Life-Threatening)
  Sender: FDA-Public Use
  Company Number: US-BRISTOL-MYERS SQUIBB COMPANY-14726038

PATIENT
  Age: 77 Year
  Sex: Female

DRUGS (2)
  1. SPRYCEL [Suspect]
     Indication: CHRONIC MYELOID LEUKAEMIA
     Dosage: RECEIVED FOR ABOUT 6-8 WEEKS
     Route: 048
     Dates: start: 20090615, end: 20090713
  2. GLEEVEC [Suspect]
     Dates: start: 20060601, end: 20090401

REACTIONS (1)
  - RENAL FAILURE CHRONIC [None]
